FAERS Safety Report 4302239-2 (Version None)
Quarter: 2004Q1

REPORT INFORMATION
  Report Type: 
  Country: None (occurrence: None)
  Receive Date: 20040220
  Receipt Date: 20040206
  Transmission Date: 20041129
  Serious: Yes (Life-Threatening, Other)
  Sender: FDA-Public Use
  Company Number: 2004008302

PATIENT
  Age: 50 Year
  Sex: Male
  Weight: 104 kg

DRUGS (25)
  1. SORTIS (ATORVASTATIN) [Suspect]
     Indication: HYPERLIPIDAEMIA
     Dosage: 20 MG PER DAY, ORAL
     Route: 048
  2. PROPOFOL [Suspect]
     Indication: SURGERY
  3. SIMVASTATIN [Concomitant]
  4. SUFENTANIL CITRATE [Concomitant]
  5. LIDOCAINE [Concomitant]
  6. PIRITRAMIDE (PIRITRAMIDE) [Concomitant]
  7. ENALAPRIL MALEATE [Concomitant]
  8. DEXAMETHASONE [Concomitant]
  9. LORMETAZEPAM (LORMETAZEPAM) [Concomitant]
  10. RAMIPRIL [Concomitant]
  11. ETOMIDATE (ETOMIDATE) [Concomitant]
  12. PANCURONIUM BROMIDE [Concomitant]
  13. CEFOTIAM (CEFOTIAM) [Concomitant]
  14. TIROFIBAN (TIROFIBAN) [Concomitant]
  15. ENOXAPARIN SODIUM [Concomitant]
  16. ACETYLSALICYLIC ACID SRT [Concomitant]
  17. FUROSEMIDE [Concomitant]
  18. ENOXIMONE (ENOXIMONE) [Concomitant]
  19. METAMIZOLE (METAMIZOLE) [Concomitant]
  20. TORSEMIDE [Concomitant]
  21. PARACETAMOL (PARACETAMOL) [Concomitant]
  22. EPINEPHRINE [Concomitant]
  23. NOREPINEPHRINE (NOREPINEPHRINE) [Concomitant]
  24. DOPAMINE HCL [Concomitant]
  25. DOBUTAMINE (DOBUTAMINE) [Concomitant]

REACTIONS (4)
  - ARRHYTHMIA SUPRAVENTRICULAR [None]
  - DRUG INTERACTION [None]
  - RHABDOMYOLYSIS [None]
  - VENTRICULAR ARRHYTHMIA [None]
